FAERS Safety Report 8607365-5 (Version None)
Quarter: 2012Q3

REPORT INFORMATION
  Report Type: 
  Country: None (occurrence: None)
  Receive Date: 20120821
  Receipt Date: 20120815
  Transmission Date: 20120928
  Serious: No
  Sender: FDA-Public Use
  Company Number: US-PFIZER INC-2012199952

PATIENT

DRUGS (1)
  1. SEPTRA DS [Suspect]
     Dosage: 1 TABLET TWICE DAILY
     Dates: start: 20120627, end: 20120705

REACTIONS (1)
  - URTICARIA [None]
